FAERS Safety Report 7342890-9 (Version None)
Quarter: 2011Q1

REPORT INFORMATION
  Report Type: 
  Country: None (occurrence: None)
  Receive Date: 20110302
  Receipt Date: 20110215
  Transmission Date: 20110831
  Serious: Yes (Hospitalization)
  Sender: FDA-Public Use
  Company Number: AUR-APL-2010-02055

PATIENT
  Age: 76 Year
  Sex: Female

DRUGS (7)
  1. ALLOPURINOL [Suspect]
     Dosage: 200MG, DAILY, ORAL
     Route: 048
  2. METFORMIN HCL [Suspect]
     Dosage: 1DF, DAILY, ORAL
     Route: 048
  3. AMARYL [Suspect]
     Dosage: 1DF, DAILY, ORAL
     Route: 048
  4. KARDEGIC [Suspect]
     Dosage: 75MG DAILY, ORAL
     Route: 048
  5. NIDREL [Suspect]
     Dosage: 20MG, DAILY, ORAL
     Route: 048
  6. TENORMIN [Suspect]
     Dosage: 100MG, DAILY, ORAL
     Route: 048
  7. LIPANTHYL [Suspect]
     Dosage: 160MG, DAILY, ORAL
     Route: 048

REACTIONS (5)
  - AUTOIMMUNE HEPATITIS [None]
  - CHOLESTASIS [None]
  - HEPATIC FAILURE [None]
  - CYTOLYTIC HEPATITIS [None]
  - HEPATIC CIRRHOSIS [None]
